FAERS Safety Report 4635886-9 (Version None)
Quarter: 2005Q2

REPORT INFORMATION
  Report Type: 
  Country: None (occurrence: None)
  Receive Date: 20050415
  Receipt Date: 20050408
  Transmission Date: 20051028
  Serious: Yes (Other)
  Sender: FDA-Public Use
  Company Number: US-GLAXOSMITHKLINE-A0553378A

PATIENT
  Age: 26 Year
  Sex: Male

DRUGS (2)
  1. PAXIL [Suspect]
     Indication: DRUG USE FOR UNKNOWN INDICATION
     Dosage: 20MG PER DAY
     Route: 048
     Dates: start: 20050330
  2. NO CONCURRENT MEDICATION [Concomitant]

REACTIONS (3)
  - AGGRESSION [None]
  - AGITATION [None]
  - HOMICIDAL IDEATION [None]
